FAERS Safety Report 9234167 (Version 2)
Quarter: 2013Q4

REPORT INFORMATION
  Report Type: Spontaneous
  Country: JP (occurrence: JP)
  Receive Date: 20130416
  Receipt Date: 20131120
  Transmission Date: 20140711
  Serious: Yes (Other)
  Sender: FDA-Public Use
  Company Number: JP-PFIZER INC-2013116389

PATIENT
  Age: 55 Year
  Sex: 0

DRUGS (1)
  1. METHYLPREDNISOLONE SODIUM SUCCINATE [Suspect]
     Indication: ENDOCRINE OPHTHALMOPATHY
     Dosage: 500MG FOR 3DAYS WITH 4DAY DRUG INTERRUPTION PERFORMED IN 3CYCLES

REACTIONS (1)
  - Hyperglycaemia [Unknown]
